FAERS Safety Report 5564476-9 (Version None)
Quarter: 2007Q4

REPORT INFORMATION
  Report Type: 
  Country: None (occurrence: None)
  Receive Date: 20071218
  Receipt Date: 20071206
  Transmission Date: 20080405
  Serious: Yes (Other)
  Sender: FDA-Public Use
  Company Number: US-JNJFOC-20071202662

PATIENT
  Sex: Male
  Weight: 62.14 kg

DRUGS (5)
  1. TOPAMAX [Suspect]
     Indication: MIGRAINE PROPHYLAXIS
     Route: 048
  2. SOMA [Concomitant]
  3. DOXYCYCLINE [Concomitant]
  4. MIDRIN [Concomitant]
  5. ANTIBIOTICS [Concomitant]

REACTIONS (1)
  - PEYRONIE'S DISEASE [None]
